FAERS Safety Report 19891128 (Version 2)
Quarter: 2021Q4

REPORT INFORMATION
  Report Type: Report from Study
  Country: JP (occurrence: JP)
  Receive Date: 20210928
  Receipt Date: 20211208
  Transmission Date: 20220303
  Serious: Yes (Hospitalization, Other)
  Sender: FDA-Public Use
  Company Number: JP-ROCHE-2448338

PATIENT
  Age: 64 Year
  Sex: Male
  Weight: 58.6 kg

DRUGS (48)
  1. POLATUZUMAB VEDOTIN [Suspect]
     Active Substance: POLATUZUMAB VEDOTIN
     Indication: Diffuse large B-cell lymphoma
     Route: 041
     Dates: start: 20190425, end: 20190425
  2. POLATUZUMAB VEDOTIN [Suspect]
     Active Substance: POLATUZUMAB VEDOTIN
     Route: 042
     Dates: start: 20190516, end: 20190516
  3. POLATUZUMAB VEDOTIN [Suspect]
     Active Substance: POLATUZUMAB VEDOTIN
     Route: 042
     Dates: start: 20190606, end: 20190606
  4. POLATUZUMAB VEDOTIN [Suspect]
     Active Substance: POLATUZUMAB VEDOTIN
     Route: 042
     Dates: start: 20190627, end: 20190627
  5. POLATUZUMAB VEDOTIN [Suspect]
     Active Substance: POLATUZUMAB VEDOTIN
     Route: 042
     Dates: start: 20190718, end: 20190718
  6. POLATUZUMAB VEDOTIN [Suspect]
     Active Substance: POLATUZUMAB VEDOTIN
     Route: 042
     Dates: start: 20190808, end: 20190808
  7. BENDAMUSTINE [Suspect]
     Active Substance: BENDAMUSTINE
     Indication: Diffuse large B-cell lymphoma
     Route: 041
     Dates: start: 20190425, end: 20190425
  8. BENDAMUSTINE [Suspect]
     Active Substance: BENDAMUSTINE
     Route: 042
     Dates: start: 20190426, end: 20190426
  9. BENDAMUSTINE [Suspect]
     Active Substance: BENDAMUSTINE
     Route: 042
     Dates: start: 20190516, end: 20190516
  10. BENDAMUSTINE [Suspect]
     Active Substance: BENDAMUSTINE
     Route: 042
     Dates: start: 20190517, end: 20190517
  11. BENDAMUSTINE [Suspect]
     Active Substance: BENDAMUSTINE
     Route: 042
     Dates: start: 20190606, end: 20190606
  12. BENDAMUSTINE [Suspect]
     Active Substance: BENDAMUSTINE
     Route: 042
     Dates: start: 20190607, end: 20190607
  13. BENDAMUSTINE [Suspect]
     Active Substance: BENDAMUSTINE
     Route: 042
     Dates: start: 20190627, end: 20190627
  14. BENDAMUSTINE [Suspect]
     Active Substance: BENDAMUSTINE
     Route: 042
     Dates: start: 20190628, end: 20190628
  15. BENDAMUSTINE [Suspect]
     Active Substance: BENDAMUSTINE
     Route: 042
     Dates: start: 20190718, end: 20190718
  16. BENDAMUSTINE [Suspect]
     Active Substance: BENDAMUSTINE
     Route: 042
     Dates: start: 20190719, end: 20190719
  17. BENDAMUSTINE [Suspect]
     Active Substance: BENDAMUSTINE
     Route: 042
     Dates: start: 20190808, end: 20190808
  18. BENDAMUSTINE [Suspect]
     Active Substance: BENDAMUSTINE
     Route: 042
     Dates: start: 20190809, end: 20190809
  19. RITUXIMAB [Suspect]
     Active Substance: RITUXIMAB
     Indication: Diffuse large B-cell lymphoma
     Route: 041
     Dates: start: 20190424, end: 20190424
  20. RITUXIMAB [Suspect]
     Active Substance: RITUXIMAB
     Route: 041
     Dates: start: 20190516, end: 20190516
  21. RITUXIMAB [Suspect]
     Active Substance: RITUXIMAB
     Route: 041
     Dates: start: 20190606, end: 20190606
  22. RITUXIMAB [Suspect]
     Active Substance: RITUXIMAB
     Route: 041
     Dates: start: 20190627, end: 20190627
  23. RITUXIMAB [Suspect]
     Active Substance: RITUXIMAB
     Route: 041
     Dates: start: 20190718, end: 20190718
  24. RITUXIMAB [Suspect]
     Active Substance: RITUXIMAB
     Route: 041
     Dates: start: 20190808, end: 20190808
  25. FEBUXOSTAT [Concomitant]
     Active Substance: FEBUXOSTAT
     Indication: Hyperuricaemia
     Route: 048
     Dates: start: 2011
  26. AMLODIPINE BESYLATE [Concomitant]
     Active Substance: AMLODIPINE BESYLATE
     Indication: Hypertension
     Route: 048
     Dates: start: 2019
  27. CALONAL [Concomitant]
     Active Substance: ACETAMINOPHEN
     Indication: Pyrexia
     Route: 048
     Dates: start: 201903, end: 20190716
  28. PREDNISOLONE [Concomitant]
     Active Substance: PREDNISOLONE
     Route: 048
     Dates: start: 20190422, end: 20190424
  29. LENOGRASTIM [Concomitant]
     Active Substance: LENOGRASTIM
  30. ACETAMINOPHEN [Concomitant]
     Active Substance: ACETAMINOPHEN
     Indication: Pyrexia
     Route: 048
     Dates: start: 20190424, end: 20190808
  31. DEXCHLORPHENIRAMINE MALEATE [Concomitant]
     Active Substance: DEXCHLORPHENIRAMINE MALEATE
     Route: 048
     Dates: start: 20190424, end: 20190808
  32. FLUCONAZOLE [Concomitant]
     Active Substance: FLUCONAZOLE
     Route: 048
     Dates: start: 20190425, end: 20190620
  33. ACYCLOVIR [Concomitant]
     Active Substance: ACYCLOVIR
     Route: 048
     Dates: start: 20190425
  34. APREPITANT [Concomitant]
     Active Substance: APREPITANT
     Route: 048
     Dates: start: 20190425, end: 20190810
  35. NEXIUM [Concomitant]
     Active Substance: ESOMEPRAZOLE MAGNESIUM
     Dates: start: 20190507
  36. PENTAMIDINE [Concomitant]
     Active Substance: PENTAMIDINE
     Route: 042
     Dates: start: 20190426
  37. GRANISETRON HYDROCHLORIDE [Concomitant]
     Active Substance: GRANISETRON HYDROCHLORIDE
     Dates: start: 20190425, end: 20190809
  38. DEXAMETHASONE SODIUM PHOSPHATE [Concomitant]
     Active Substance: DEXAMETHASONE SODIUM PHOSPHATE
     Route: 042
     Dates: start: 20190425, end: 20190809
  39. PEGFILGRASTIM [Concomitant]
     Active Substance: PEGFILGRASTIM
     Route: 058
     Dates: start: 20190428, end: 20190428
  40. PEGFILGRASTIM [Concomitant]
     Active Substance: PEGFILGRASTIM
     Route: 058
     Dates: start: 20190520, end: 20190520
  41. PEGFILGRASTIM [Concomitant]
     Active Substance: PEGFILGRASTIM
     Route: 058
     Dates: start: 20190610, end: 20190610
  42. PEGFILGRASTIM [Concomitant]
     Active Substance: PEGFILGRASTIM
     Route: 058
     Dates: start: 20190701, end: 20190701
  43. PEGFILGRASTIM [Concomitant]
     Active Substance: PEGFILGRASTIM
     Route: 058
     Dates: start: 20190722, end: 20190722
  44. PEGFILGRASTIM [Concomitant]
     Active Substance: PEGFILGRASTIM
     Route: 058
     Dates: start: 20190813, end: 20190813
  45. VFEND [Concomitant]
     Active Substance: VORICONAZOLE
     Route: 048
     Dates: start: 20190621
  46. CIPROFLOXACIN [Concomitant]
     Active Substance: CIPROFLOXACIN
     Route: 048
     Dates: start: 20190624, end: 20190627
  47. LEVOFLOXACIN [Concomitant]
     Active Substance: LEVOFLOXACIN
     Route: 048
     Dates: start: 20190628, end: 20190904
  48. CHLORPHENIRAMINE MALEATE [Concomitant]
     Active Substance: CHLORPHENIRAMINE MALEATE
     Route: 042
     Dates: start: 20190821, end: 20190821

REACTIONS (2)
  - Metastasis [Unknown]
  - Febrile neutropenia [Recovered/Resolved]

NARRATIVE: CASE EVENT DATE: 20191002
